FAERS Safety Report 9542190 (Version 1)
Quarter: 2013Q3

REPORT INFORMATION
  Report Type: Spontaneous
  Country: GB (occurrence: None)
  Receive Date: 20130918
  Receipt Date: 20130918
  Transmission Date: 20140515
  Serious: Yes (Other)
  Sender: FDA-Public Use
  Company Number: AUR-APL-2013-07564

PATIENT
  Age: 36 Year
  Sex: Female

DRUGS (2)
  1. SERTRALINE [Suspect]
     Indication: DEPRESSION
     Route: 048
  2. VITAMIN B (VITAMIN B COMPLEX) [Concomitant]

REACTIONS (4)
  - Abnormal dreams [None]
  - Anxiety [None]
  - Emotional distress [None]
  - Sleep apnoea syndrome [None]
